FAERS Safety Report 12182402 (Version 1)
Quarter: 2016Q1

REPORT INFORMATION
  Report Type: Spontaneous
  Country: US (occurrence: US)
  Receive Date: 20160316
  Receipt Date: 20160316
  Transmission Date: 20160526
  Serious: No
  Sender: FDA-Public Use
  Company Number: US-HOSPIRA-2765936

PATIENT
  Age: 51 Year
  Sex: Male
  Weight: 130.6 kg

DRUGS (1)
  1. SODIUM CHLORIDE. [Suspect]
     Active Substance: SODIUM CHLORIDE
     Indication: PRODUCT USED FOR UNKNOWN INDICATION
     Dosage: NOT REPORTED
     Route: 042

REACTIONS (3)
  - Incorrect product formulation administered [Unknown]
  - Product distribution issue [Unknown]
  - No adverse event [None]

NARRATIVE: CASE EVENT DATE: 20150221
